FAERS Safety Report 8372209-6 (Version None)
Quarter: 2012Q2

REPORT INFORMATION
  Report Type: 
  Country: None (occurrence: None)
  Receive Date: 20120521
  Receipt Date: 20120511
  Transmission Date: 20120825
  Serious: Yes (Other)
  Sender: FDA-Public Use
  Company Number: US-BIOGENIDEC-2012BI016794

PATIENT
  Age: 69 Year
  Sex: Female

DRUGS (3)
  1. AVONEX [Suspect]
     Indication: MULTIPLE SCLEROSIS
     Route: 030
     Dates: start: 19971204, end: 20100809
  2. AVONEX [Suspect]
     Route: 030
     Dates: start: 20110901
  3. AVONEX [Suspect]
     Route: 030
     Dates: start: 20100915, end: 20110404

REACTIONS (4)
  - DRUG INEFFECTIVE [None]
  - SECONDARY PROGRESSIVE MULTIPLE SCLEROSIS [None]
  - MUSCLE SPASMS [None]
  - RESPIRATORY FAILURE [None]
